FAERS Safety Report 5378448-0 (Version None)
Quarter: 2007Q3

REPORT INFORMATION
  Report Type: 
  Country: None (occurrence: None)
  Receive Date: 20070702
  Receipt Date: 20070620
  Transmission Date: 20080115
  Serious: Yes (Hospitalization)
  Sender: FDA-Public Use
  Company Number: MEDI-0005053

PATIENT
  Age: 1 Month

DRUGS (3)
  1. SYNAGIS [Suspect]
     Indication: ANTIVIRAL PROPHYLAXIS
     Dosage: SEE IMAGE
     Route: 030
     Dates: start: 20060116, end: 20060116
  2. SYNAGIS [Suspect]
     Indication: ANTIVIRAL PROPHYLAXIS
     Dosage: SEE IMAGE
     Route: 030
     Dates: start: 20060216
  3. SYNAGIS [Suspect]
     Indication: ANTIVIRAL PROPHYLAXIS
     Dosage: SEE IMAGE
     Route: 030
     Dates: start: 20060316

REACTIONS (6)
  - ANOREXIA [None]
  - GASTROENTERITIS [None]
  - HAEMOPHILUS INFECTION [None]
  - INCREASED BRONCHIAL SECRETION [None]
  - RESPIRATORY TRACT INFECTION [None]
  - TRACHEOMALACIA [None]
